FAERS Safety Report 21574699 (Version 2)
Quarter: 2022Q4

REPORT INFORMATION
  Report Type: Report from Study
  Country: DE (occurrence: DE)
  Receive Date: 20221109
  Receipt Date: 20221220
  Transmission Date: 20230113
  Serious: No
  Sender: FDA-Public Use
  Company Number: DE-ABBVIE-4190987

PATIENT
  Age: 49 Year
  Sex: Male
  Weight: 88 kg

DRUGS (13)
  1. RINVOQ [Suspect]
     Active Substance: UPADACITINIB
     Indication: Rheumatoid arthritis
     Route: 048
     Dates: start: 20210415
  2. NALOXONE HYDROCHLORIDE\TILIDINE HYDROCHLORIDE [Concomitant]
     Active Substance: NALOXONE HYDROCHLORIDE\TILIDINE HYDROCHLORIDE
     Indication: Paraesthesia
     Route: 048
     Dates: start: 20211007
  3. SHINGRIX [Concomitant]
     Active Substance: RECOMBINANT VARICELLA ZOSTER VIRUS (VZV) GLYCOPROTEIN E
     Indication: Varicella zoster virus infection
     Dosage: DRUG END DATE IS 2021
     Dates: start: 20210712
  4. SHINGRIX [Concomitant]
     Active Substance: RECOMBINANT VARICELLA ZOSTER VIRUS (VZV) GLYCOPROTEIN E
     Indication: Varicella zoster virus infection
     Dates: start: 202110
  5. LYRICA [Concomitant]
     Active Substance: PREGABALIN
     Indication: Paraesthesia
     Route: 048
  6. AMLODIPINE BESYLATE [Concomitant]
     Active Substance: AMLODIPINE BESYLATE
     Indication: Hypertension
     Route: 048
     Dates: start: 201903
  7. PREDNISOLONE [Concomitant]
     Active Substance: PREDNISOLONE
     Indication: Product used for unknown indication
     Route: 048
     Dates: start: 20210415, end: 20210620
  8. PREDNISOLONE [Concomitant]
     Active Substance: PREDNISOLONE
     Indication: Product used for unknown indication
     Route: 048
     Dates: start: 20211004, end: 20211010
  9. PREDNISOLONE [Concomitant]
     Active Substance: PREDNISOLONE
     Indication: Product used for unknown indication
     Route: 048
     Dates: start: 20211011, end: 202112
  10. METOPROLOL [Concomitant]
     Active Substance: METOPROLOL
     Indication: Hypertension
     Route: 048
     Dates: start: 201802
  11. COVID-19 vaccine [Concomitant]
     Indication: COVID-19 immunisation
     Dosage: 1 IN ONCE
     Route: 030
     Dates: start: 20210518, end: 20210518
  12. COVID-19 vaccine [Concomitant]
     Indication: COVID-19 immunisation
     Dosage: 1 IN ONCE
     Route: 030
     Dates: start: 20210619, end: 20210619
  13. COVID-19 vaccine [Concomitant]
     Indication: COVID-19 immunisation
     Dosage: 1 IN ONCE
     Route: 030
     Dates: start: 20211212, end: 20211212

REACTIONS (1)
  - COVID-19 [Recovered/Resolved]

NARRATIVE: CASE EVENT DATE: 20220811
